FAERS Safety Report 14167937 (Version 1)
Quarter: 2017Q4

REPORT INFORMATION
  Report Type: Spontaneous
  Country: JP (occurrence: JP)
  Receive Date: 20171108
  Receipt Date: 20171108
  Transmission Date: 20180321
  Serious: Yes (Other)
  Sender: FDA-Public Use
  Company Number: JP-VIFOR (INTERNATIONAL) INC.-VIT-2017-12054

PATIENT
  Age: 58 Year
  Sex: Male

DRUGS (8)
  1. CALCIUM CARBONATE. [Concomitant]
     Active Substance: CALCIUM CARBONATE
     Route: 065
  2. JUSO [Concomitant]
     Active Substance: SODIUM BICARBONATE
     Route: 065
  3. MIRCERA [Suspect]
     Active Substance: METHOXY POLYETHYLENE GLYCOL-EPOETIN BETA
     Indication: NEPHROGENIC ANAEMIA
     Route: 042
     Dates: start: 20171012, end: 20171012
  4. CRESTOR [Concomitant]
     Active Substance: ROSUVASTATIN CALCIUM
     Route: 065
  5. PREDONIN [Concomitant]
     Active Substance: PREDNISOLONE
     Route: 065
  6. AMLODIN [Concomitant]
     Active Substance: AMLODIPINE BESYLATE
     Route: 065
  7. KREMEZIN [Concomitant]
     Active Substance: ACTIVATED CHARCOAL
     Route: 065
     Dates: start: 20150623
  8. ZYLORIC [Concomitant]
     Active Substance: ALLOPURINOL
     Route: 065

REACTIONS (8)
  - Rash [Recovered/Resolved]
  - Flushing [Unknown]
  - Urticaria [Unknown]
  - Generalised erythema [Recovered/Resolved]
  - Dysphoria [Recovered/Resolved]
  - Piloerection [Recovered/Resolved]
  - Oxygen saturation decreased [Recovered/Resolved]
  - Blood pressure decreased [Recovered/Resolved]

NARRATIVE: CASE EVENT DATE: 20171012
